FAERS Safety Report 4958114-3 (Version None)
Quarter: 2006Q1

REPORT INFORMATION
  Report Type: 
  Country: None (occurrence: None)
  Receive Date: 20060127
  Receipt Date: 20041203
  Transmission Date: 20060701
  Serious: Yes (Other)
  Sender: FDA-Public Use
  Company Number: 04-12-1684

PATIENT
  Age: 44 Year
  Sex: Male

DRUGS (1)
  1. CLOZAPINE [Suspect]
     Dosage: 700 MG, QD; ORAL
     Route: 048
     Dates: start: 20030601, end: 20041115

REACTIONS (1)
  - NEUTROPENIA [None]
